FAERS Safety Report 9501609 (Version 1)
Quarter: 2013Q3

REPORT INFORMATION
  Report Type: Spontaneous
  Country: US (occurrence: US)
  Receive Date: 20130905
  Receipt Date: 20130905
  Transmission Date: 20140515
  Serious: Yes (Hospitalization)
  Sender: FDA-Public Use
  Company Number: US-ASTRAZENECA-2013SE66797

PATIENT
  Age: 31007 Day
  Sex: Female
  Weight: 59.9 kg

DRUGS (7)
  1. NEXIUM [Suspect]
     Route: 048
     Dates: start: 2007, end: 2012
  2. NEXIUM [Suspect]
     Route: 048
     Dates: start: 2012
  3. LEVOTHYROXINE [Concomitant]
     Indication: THYROID DISORDER
     Route: 048
     Dates: start: 2004
  4. TRICOR [Concomitant]
     Indication: BLOOD CHOLESTEROL ABNORMAL
     Route: 048
     Dates: start: 2008
  5. ASPIRIN [Concomitant]
     Indication: CARDIAC DISORDER
     Route: 048
     Dates: start: 2008
  6. MAGNESIUM [Concomitant]
     Dosage: UNKNOWN DAILY
     Route: 048
     Dates: start: 2008
  7. VITAMIN D [Concomitant]
     Dosage: UNKNOWN DAILY
     Route: 048

REACTIONS (1)
  - Myocardial infarction [Recovered/Resolved]
